FAERS Safety Report 8058221-5 (Version None)
Quarter: 2012Q1

REPORT INFORMATION
  Report Type: 
  Country: None (occurrence: None)
  Receive Date: 20120111
  Receipt Date: 20120103
  Transmission Date: 20120608
  Serious: Yes (Disabling)
  Sender: FDA-Public Use
  Company Number: 2012SP000543

PATIENT
  Age: 38 Year
  Sex: Male

DRUGS (2)
  1. RIBAVIRIN [Suspect]
     Indication: HEPATITIS C
     Dates: start: 19960101
  2. INTRON A [Suspect]
     Indication: HEPATITIS C
     Dosage: 100000 IU
     Dates: start: 19960101

REACTIONS (9)
  - LIVER DISORDER [None]
  - ALOPECIA [None]
  - DRUG INEFFECTIVE [None]
  - MIGRAINE [None]
  - ENCEPHALITIS [None]
  - TENDONITIS [None]
  - OSTEOARTHRITIS [None]
  - PAIN [None]
  - ECONOMIC PROBLEM [None]
